FAERS Safety Report 6930197-0 (Version None)
Quarter: 2010Q3

REPORT INFORMATION
  Report Type: 
  Country: None (occurrence: None)
  Receive Date: 20100817
  Receipt Date: 20100817
  Transmission Date: 20110219
  Serious: Yes (Death, Life-Threatening, Hospitalization, Other)
  Sender: FDA-Public Use
  Company Number: None

PATIENT
  Age: 39 Year
  Sex: Male
  Weight: 68.0396 kg

DRUGS (3)
  1. SEROQUEL [Suspect]
     Indication: MANIA
     Dosage: SEROQUEL 250/50/50 PO
     Route: 048
     Dates: start: 20080901, end: 20090201
  2. DEPAKOTE [Suspect]
     Indication: MANIA
     Dosage: DEPAKOTE 1500MG? PO
     Route: 048
     Dates: start: 20080901, end: 20090201
  3. ATIVAN [Concomitant]

REACTIONS (4)
  - ASPHYXIA [None]
  - COMA [None]
  - DEPRESSION [None]
  - SUICIDAL IDEATION [None]
